FAERS Safety Report 17644910 (Version 1)
Quarter: 2020Q2

REPORT INFORMATION
  Report Type: Spontaneous
  Country: US (occurrence: US)
  Receive Date: 20200408
  Receipt Date: 20200408
  Transmission Date: 20200713
  Serious: Yes (Death)
  Sender: FDA-Public Use
  Company Number: NVSC2020US094568

PATIENT
  Age: 28 Year
  Sex: Male

DRUGS (2)
  1. PROMACTA [Suspect]
     Active Substance: ELTROMBOPAG OLAMINE
     Indication: NEUTROPENIA
     Dosage: 150 MG, QD
     Route: 048
     Dates: start: 202001
  2. PROMACTA [Suspect]
     Active Substance: ELTROMBOPAG OLAMINE
     Indication: LEUKAEMIA

REACTIONS (2)
  - Product use in unapproved indication [Unknown]
  - Leukaemia [Fatal]

NARRATIVE: CASE EVENT DATE: 202001
